FAERS Safety Report 16945496 (Version 1)
Quarter: 2019Q4

REPORT INFORMATION
  Report Type: Spontaneous
  Country: US (occurrence: US)
  Receive Date: 20191021
  Receipt Date: 20191021
  Transmission Date: 20200122
  Serious: Yes (Hospitalization, Other)
  Sender: FDA-Public Use
  Company Number: None

PATIENT
  Age: 44 Year
  Sex: Female

DRUGS (8)
  1. CAPECITABINE. [Suspect]
     Active Substance: CAPECITABINE
     Indication: BREAST CANCER
     Route: 048
     Dates: start: 20190927
  2. LOPERAMIDE [Concomitant]
     Active Substance: LOPERAMIDE
  3. VIRTUSSIN AC [Concomitant]
     Active Substance: CODEINE PHOSPHATE\GUAIFENESIN
  4. SMZ/TMP DS [Concomitant]
     Active Substance: SULFAMETHOXAZOLE\TRIMETHOPRIM
  5. METHYLPRED [Concomitant]
     Active Substance: METHYLPREDNISOLONE
  6. PANTOPRAZOLE [Concomitant]
     Active Substance: PANTOPRAZOLE
  7. ASMANEX HFA [Concomitant]
     Active Substance: MOMETASONE FUROATE
  8. LORATADINE. [Concomitant]
     Active Substance: LORATADINE

REACTIONS (2)
  - Pulmonary thrombosis [None]
  - Pneumonia [None]

NARRATIVE: CASE EVENT DATE: 20191007
